FAERS Safety Report 25806579 (Version 1)
Quarter: 2025Q3

REPORT INFORMATION
  Report Type: Spontaneous
  Country: CA (occurrence: CA)
  Receive Date: 20250916
  Receipt Date: 20250916
  Transmission Date: 20251021
  Serious: Yes (Other)
  Sender: ACCORD
  Company Number: None

PATIENT

DRUGS (1)
  1. PACLITAXEL [Suspect]
     Active Substance: PACLITAXEL
     Indication: Product used for unknown indication
     Route: 042

REACTIONS (6)
  - Hypotension [Unknown]
  - Flushing [Unknown]
  - Bradycardia [Unknown]
  - Skin reaction [Unknown]
  - Loss of consciousness [Unknown]
  - Nausea [Unknown]
